FAERS Safety Report 20141104 (Version 5)
Quarter: 2022Q1

REPORT INFORMATION
  Report Type: Spontaneous
  Country: DE (occurrence: DE)
  Receive Date: 20211202
  Receipt Date: 20220118
  Transmission Date: 20220423
  Serious: Yes (Hospitalization, Other)
  Sender: FDA-Public Use
  Company Number: DE-NOVARTISPH-NVSC2021DE273887

PATIENT
  Sex: Female

DRUGS (4)
  1. PIQRAY [Suspect]
     Active Substance: ALPELISIB
     Indication: Breast cancer
     Dosage: 150 MG
     Route: 065
     Dates: start: 2021, end: 2021
  2. PIQRAY [Suspect]
     Active Substance: ALPELISIB
     Indication: Bone cancer
     Dosage: 200 MG, QD (SINCE SPRING, APRIL)
     Route: 065
     Dates: start: 2021, end: 2021
  3. PIQRAY [Suspect]
     Active Substance: ALPELISIB
     Indication: Neoplasm
  4. PIQRAY [Suspect]
     Active Substance: ALPELISIB
     Indication: Metastases to bone

REACTIONS (7)
  - Lower limb fracture [Unknown]
  - Accident [Unknown]
  - Foot fracture [Unknown]
  - Neoplasm [Unknown]
  - Tumour marker increased [Unknown]
  - Skin disorder [Unknown]
  - Mucosal disorder [Unknown]

NARRATIVE: CASE EVENT DATE: 20210101
